FAERS Safety Report 9184305 (Version 1)
Quarter: 2012Q4

REPORT INFORMATION
  Report Type: 
  Country: JP (occurrence: JP)
  Receive Date: 20121031
  Receipt Date: 20121031
  Transmission Date: 20130627
  Serious: Yes (Death, Life-Threatening, Other)
  Sender: FDA-Public Use
  Company Number: JP-ELI_LILLY_AND_COMPANY-JP201210008179

PATIENT
  Age: 70 Year
  Sex: Female

DRUGS (25)
  1. ALIMTA [Suspect]
     Indication: NON-SMALL CELL LUNG CANCER
     Dosage: 650 mg, q28d
     Route: 042
     Dates: start: 20100625, end: 20100721
  2. BEVACIZUMAB [Concomitant]
     Indication: LUNG ADENOCARCINOMA
     Dosage: 15 mg/kg, q28b
     Route: 042
     Dates: start: 20100625
  3. TOCILIZUMAB [Concomitant]
     Indication: LUNG ADENOCARCINOMA
     Dosage: 360 mg, q28d
     Route: 042
     Dates: start: 20080807
  4. TOCILIZUMAB [Concomitant]
     Dosage: 400 mg, q28d
     Dates: start: 20081001, end: 20100510
  5. PREDNISOLONE [Concomitant]
  6. DICLOFENAC [Concomitant]
  7. LORNOXICAM [Concomitant]
  8. TACROLIMUS [Concomitant]
     Indication: RHEUMATOID ARTHRITIS
     Route: 048
  9. PENICILLAMINE [Concomitant]
     Indication: RHEUMATOID ARTHRITIS
     Route: 048
  10. ISONIAZID [Concomitant]
     Indication: PROPHYLAXIS
     Dosage: 200 mg, qd
     Route: 048
  11. PYRIDOXAL [Concomitant]
     Indication: PROPHYLAXIS
     Dosage: 20 mg, qd
     Route: 048
  12. LANSOPRAZOL [Concomitant]
  13. CILOSTAZOL [Concomitant]
  14. ALENDRONIC ACID [Concomitant]
  15. SENNOSIDES A+B [Concomitant]
  16. FLURBIPROFEN [Concomitant]
  17. MISOPROSTOL [Concomitant]
  18. CARBOPLATIN [Concomitant]
     Indication: NON-SMALL CELL LUNG CANCER
     Dosage: 350 mg, q28d
     Dates: start: 20100625
  19. FERROUS CITRATE [Concomitant]
  20. CLARITHROMYCIN [Concomitant]
  21. LEVOFLOXACIN [Concomitant]
  22. RIFADIN [Concomitant]
     Indication: PROPHYLAXIS
     Dosage: 200 mg, qd
     Route: 048
     Dates: start: 20080630
  23. LANSOPRAZOLE [Concomitant]
     Indication: GASTRITIS
     Dosage: 30 mg, qd
     Dates: end: 20100730
  24. EVISTA [Concomitant]
     Indication: OSTEOPOROSIS
     Dosage: 60 mg, UNK
     Route: 048
  25. RALOXIFENE HYDROCHLORIDE [Concomitant]

REACTIONS (13)
  - Neoplasm progression [Fatal]
  - Peritonitis [Recovered/Resolved]
  - Gastrointestinal amyloidosis [Unknown]
  - Small intestine ulcer [Unknown]
  - Cardiac failure [Recovered/Resolved]
  - Small intestinal perforation [Recovered/Resolved]
  - Pleural effusion [Recovered/Resolved]
  - Atrial fibrillation [Recovered/Resolved]
  - Tachycardia [Recovered/Resolved]
  - Blood urea increased [Unknown]
  - C-reactive protein increased [Recovered/Resolved]
  - Diarrhoea [Unknown]
  - Staphylococcal infection [Recovered/Resolved]
